FAERS Safety Report 20857121 (Version 1)
Quarter: 2022Q2

REPORT INFORMATION
  Report Type: Spontaneous
  Country: US (occurrence: US)
  Receive Date: 20220520
  Receipt Date: 20220520
  Transmission Date: 20220720
  Serious: No
  Sender: FDA-Public Use
  Company Number: US-SA-SAC20220519000084

PATIENT
  Sex: Female

DRUGS (5)
  1. ALLEGRA [Suspect]
     Active Substance: FEXOFENADINE HYDROCHLORIDE
     Dosage: UNK, QD
  2. POTASSIUM [Concomitant]
     Active Substance: POTASSIUM
     Dosage: UNK
  3. VITAMIN D3 [Concomitant]
     Active Substance: CHOLECALCIFEROL
     Dosage: UNK
  4. MOMETASONE [Concomitant]
     Active Substance: MOMETASONE
     Indication: Hypersensitivity
     Dosage: UNK
  5. MAGNESIUM [Concomitant]
     Active Substance: MAGNESIUM
     Dosage: UNK

REACTIONS (12)
  - Arthralgia [Recovering/Resolving]
  - Dysstasia [Recovering/Resolving]
  - Hypertension [Unknown]
  - Gait disturbance [Recovering/Resolving]
  - Paraesthesia [Recovered/Resolved]
  - Back pain [Not Recovered/Not Resolved]
  - Musculoskeletal stiffness [Recovered/Resolved]
  - Thyroid hormones decreased [Unknown]
  - Myalgia [Recovering/Resolving]
  - Gait disturbance [Recovering/Resolving]
  - Musculoskeletal stiffness [Recovered/Resolved]
  - Pain [Recovering/Resolving]
